FAERS Safety Report 8949690 (Version 2)
Quarter: 2013Q1

REPORT INFORMATION
  Report Type: Report from Study
  Country: JP (occurrence: JP)
  Receive Date: 20121206
  Receipt Date: 20130207
  Transmission Date: 20140127
  Serious: Yes (Other)
  Sender: FDA-Public Use
  Company Number: JP-VERTEX PHARMACEUTICALS INC.-2012-025628

PATIENT
  Age: 63 Year
  Sex: Male

DRUGS (17)
  1. VX-950 (TELAPREVIR) [Suspect]
     Indication: CHRONIC HEPATITIS C
     Dosage: 1500 MG, QD
     Route: 048
     Dates: start: 20120815, end: 20121031
  2. REBETOL [Suspect]
     Indication: CHRONIC HEPATITIS C
     Dosage: 600 MG, QD
     Route: 048
     Dates: start: 20120815, end: 20120905
  3. REBETOL [Suspect]
     Dosage: 400 MG, QD
     Route: 048
     Dates: start: 20120906, end: 20121031
  4. REBETOL [Suspect]
     Dosage: 400 MG, QD
     Route: 048
     Dates: start: 20121121, end: 20121205
  5. PEGINTERFERON ALFA-2B [Suspect]
     Indication: CHRONIC HEPATITIS C
     Dosage: 80 ?G/KG, QW
     Route: 058
     Dates: start: 20120815
  6. PEGINTERFERON ALFA-2B [Suspect]
     Dosage: 1.5 ?G/KG, QW
     Route: 058
     Dates: end: 20121024
  7. PEGINTERFERON ALFA-2B [Suspect]
     Dosage: 0.75 ?G/KG, QW
     Route: 058
     Dates: start: 20121107, end: 20121107
  8. PEGINTERFERON ALFA-2B [Suspect]
     Dosage: 1.5 ?G/KG, QW
     Route: 058
     Dates: start: 20121114, end: 20121128
  9. PREDONINE                          /00016201/ [Suspect]
     Indication: ADVERSE EVENT
     Dosage: 15 MG, QD
     Route: 048
     Dates: start: 20121103, end: 20121107
  10. PREDONINE                          /00016201/ [Suspect]
     Dosage: 10 MG, QD
     Route: 048
     Dates: start: 20121108, end: 20121111
  11. PREDONINE                          /00016201/ [Suspect]
     Dosage: 5 MG, QD
     Route: 048
     Dates: start: 20121112, end: 20121114
  12. PREDONINE                          /00016201/ [Suspect]
     Dosage: 30 MG, QD
     Route: 048
     Dates: start: 20121205, end: 20121207
  13. PREDONINE                          /00016201/ [Suspect]
     Dosage: 15 MG, QD
     Route: 048
     Dates: start: 20121208, end: 20121210
  14. PREDONINE                          /00016201/ [Suspect]
     Dosage: 10 MG, QD
     Route: 048
     Dates: start: 20121212, end: 20121216
  15. PREDONINE                          /00016201/ [Suspect]
     Dosage: 5 MG, QD
     Route: 048
     Dates: start: 20121217, end: 20121219
  16. TAKEPRON [Concomitant]
     Dosage: 15 MG, QD
     Route: 048
     Dates: start: 20121031, end: 20121219
  17. MUCOSTA [Concomitant]
     Dosage: 100 MG, PRN
     Route: 048
     Dates: start: 20120816

REACTIONS (1)
  - Rash [Not Recovered/Not Resolved]
